FAERS Safety Report 13550869 (Version 2)
Quarter: 2017Q2

REPORT INFORMATION
  Report Type: Report from Study
  Country: US (occurrence: BR)
  Receive Date: 20170516
  Receipt Date: 20170619
  Transmission Date: 20170830
  Serious: Yes (Death, Life-Threatening, Hospitalization, Other)
  Sender: FDA-Public Use
  Company Number: US-SUNOVION-2017SUN002063

PATIENT
  Sex: Male
  Weight: 125 kg

DRUGS (2)
  1. INDACATEROL AND GLYCOPYRROLATE [Suspect]
     Active Substance: GLYCOPYRROLATE\INDACATEROL MALEATE
     Dosage: 1 DF, BID (REGIMEN# 2)
     Route: 055
  2. INDACATEROL AND GLYCOPYRROLATE [Suspect]
     Active Substance: GLYCOPYRROLATE\INDACATEROL MALEATE
     Indication: EMPHYSEMA
     Dosage: 1 DF, QD (REGIMEN# 1)
     Route: 055

REACTIONS (13)
  - Yellow skin [Unknown]
  - Lung disorder [Fatal]
  - Renal impairment [Unknown]
  - Incorrect dose administered [Unknown]
  - Arrhythmia [Fatal]
  - Rectal haemorrhage [Unknown]
  - Viral upper respiratory tract infection [Unknown]
  - Gastrointestinal neoplasm [Fatal]
  - Emphysema [Fatal]
  - Cardio-respiratory arrest [Unknown]
  - Pneumonia [Unknown]
  - Haematochezia [Unknown]
  - Productive cough [Unknown]
